FAERS Safety Report 8322742-8 (Version None)
Quarter: 2012Q2

REPORT INFORMATION
  Report Type: 
  Country: None (occurrence: None)
  Receive Date: 20120430
  Receipt Date: 20120416
  Transmission Date: 20120825
  Serious: Yes (Other)
  Sender: FDA-Public Use
  Company Number: DE-PFIZER INC-2012103662

PATIENT
  Age: 13 Year

DRUGS (4)
  1. CISPLATIN [Suspect]
     Indication: HEPATIC NEOPLASM MALIGNANT NON-RESECTABLE
     Dosage: 80 MG/M2/24H D1 (CYCLICAL)
     Route: 041
  2. SORAFENIB [Suspect]
     Indication: HEPATIC NEOPLASM MALIGNANT NON-RESECTABLE
     Dosage: 352 MG/M2/DAY 5-21 (CYCLICAL)
  3. FLUOROURACIL [Concomitant]
     Indication: HEPATIC NEOPLASM MALIGNANT NON-RESECTABLE
  4. DOXORUBICIN HCL [Suspect]
     Indication: HEPATIC NEOPLASM MALIGNANT NON-RESECTABLE
     Dosage: 60 MG/M2/48H D2+3 (CYCLICAL)
     Route: 041

REACTIONS (1)
  - PALMAR-PLANTAR ERYTHRODYSAESTHESIA SYNDROME [None]
